FAERS Safety Report 16535961 (Version 4)
Quarter: 2019Q3

REPORT INFORMATION
  Report Type: Spontaneous
  Country: RU (occurrence: RU)
  Receive Date: 20190705
  Receipt Date: 20190829
  Transmission Date: 20191004
  Serious: Yes (Death, Hospitalization, Other)
  Sender: FDA-Public Use
  Company Number: RU-AMGEN-RUSSP2019105801

PATIENT
  Age: 21 Year
  Sex: Female

DRUGS (5)
  1. NPLATE [Suspect]
     Active Substance: ROMIPLOSTIM
     Dosage: 250 MICROGRAM, QWK
     Route: 058
     Dates: start: 201706, end: 2018
  2. NPLATE [Suspect]
     Active Substance: ROMIPLOSTIM
     Dosage: UNK, Q2WK
     Route: 058
     Dates: end: 201610
  3. NPLATE [Suspect]
     Active Substance: ROMIPLOSTIM
     Indication: IMMUNE THROMBOCYTOPENIC PURPURA
     Dosage: 250 MICROGRAM, QWK
     Route: 058
     Dates: start: 20160927
  4. NPLATE [Suspect]
     Active Substance: ROMIPLOSTIM
     Dosage: 500 MICROGRAM, QWK
     Route: 058
     Dates: start: 2019, end: 2019
  5. NPLATE [Suspect]
     Active Substance: ROMIPLOSTIM
     Dosage: 250 MICROGRAM, QWK
     Route: 058
     Dates: start: 2018

REACTIONS (16)
  - Traumatic intracranial haemorrhage [Unknown]
  - Epistaxis [Fatal]
  - Cardiac arrest [Fatal]
  - Vestibulocerebellar syndrome [Unknown]
  - Encephalopathy [Unknown]
  - Metabolic cardiomyopathy [Unknown]
  - Erosive oesophagitis [Unknown]
  - Cardiac failure chronic [Unknown]
  - Purpura [Unknown]
  - Off label use [Unknown]
  - Haemorrhagic stroke [Fatal]
  - Pyelonephritis acute [Unknown]
  - Gastritis haemorrhagic [Unknown]
  - Gastrointestinal haemorrhage [Fatal]
  - Metrorrhagia [Fatal]
  - Mucosal haemorrhage [Unknown]

NARRATIVE: CASE EVENT DATE: 201610
